FAERS Safety Report 12084910 (Version 2)
Quarter: 2016Q1

REPORT INFORMATION
  Report Type: Spontaneous
  Country: US (occurrence: US)
  Receive Date: 20160217
  Receipt Date: 20160219
  Transmission Date: 20160526
  Serious: Yes (Other)
  Sender: FDA-Public Use
  Company Number: US-PFIZER INC-2016087353

PATIENT
  Age: 71 Year
  Sex: Female
  Weight: 100 kg

DRUGS (1)
  1. LYRICA [Suspect]
     Active Substance: PREGABALIN
     Indication: FIBROMYALGIA
     Dosage: UNK, 2X/DAY
     Dates: end: 20151123

REACTIONS (14)
  - Gastrointestinal disorder [Unknown]
  - Irritable bowel syndrome [Unknown]
  - Hyperhidrosis [Unknown]
  - Gastritis [Unknown]
  - Condition aggravated [Unknown]
  - Decreased appetite [Unknown]
  - Abdominal distension [Unknown]
  - Weight increased [Unknown]
  - Dry mouth [Unknown]
  - Fatigue [Unknown]
  - Malaise [Unknown]
  - Weight decreased [Unknown]
  - Abdominal pain [Unknown]
  - Fibromyalgia [Unknown]
